FAERS Safety Report 21696224 (Version 1)
Quarter: 2022Q4

REPORT INFORMATION
  Report Type: Spontaneous
  Country: AU (occurrence: AU)
  Receive Date: 20221207
  Receipt Date: 20221207
  Transmission Date: 20230113
  Serious: Yes (Death, Other)
  Sender: FDA-Public Use
  Company Number: AU-ELI_LILLY_AND_COMPANY-AU202212003190

PATIENT

DRUGS (2)
  1. OLANZAPINE [Suspect]
     Active Substance: OLANZAPINE
     Indication: Schizophrenia
     Dosage: 2.5 MG, UNKNOWN
     Route: 065
     Dates: start: 2012
  2. OLANZAPINE [Suspect]
     Active Substance: OLANZAPINE
     Dosage: UNK UNK, UNKNOWN
     Route: 065
     Dates: start: 202211

REACTIONS (3)
  - Myocardial infarction [Fatal]
  - Myocardial infarction [Unknown]
  - Overweight [Unknown]

NARRATIVE: CASE EVENT DATE: 20211201
